FAERS Safety Report 6590778-3 (Version None)
Quarter: 2010Q1

REPORT INFORMATION
  Report Type: 
  Country: None (occurrence: None)
  Receive Date: 20100219
  Receipt Date: 20100217
  Transmission Date: 20100710
  Serious: Yes (Hospitalization)
  Sender: FDA-Public Use
  Company Number: US-GILEAD-2010-0027058

PATIENT
  Sex: Male

DRUGS (15)
  1. LETAIRIS [Suspect]
     Indication: PULMONARY ARTERIAL HYPERTENSION
     Route: 048
     Dates: start: 20091021
  2. NORVASC [Concomitant]
  3. LASIX [Concomitant]
  4. BACTRIM [Concomitant]
  5. DIABETA [Concomitant]
  6. GLIPIZIDE [Concomitant]
  7. TRAMADOL [Concomitant]
  8. ALBUTEROL [Concomitant]
  9. BENADRYL [Concomitant]
  10. TUMS [Concomitant]
  11. LACTULOSE [Concomitant]
  12. FERROUS SULFATE TAB [Concomitant]
  13. POTASSIUM CHLORIDE [Concomitant]
  14. MULTI-VITAMIN [Concomitant]
  15. FOLIC ACID [Concomitant]

REACTIONS (1)
  - CELLULITIS [None]
